FAERS Safety Report 9258140 (Version 1)
Quarter: 2013Q1

REPORT INFORMATION
  Report Type: Spontaneous
  Country: US (occurrence: None)
  Receive Date: 20121212
  Receipt Date: 20121212
  Transmission Date: 20140127
  Serious: No
  Sender: FDA-Public Use
  Company Number: 1209USA003200

PATIENT
  Age: 64 Year
  Sex: Male

DRUGS (7)
  1. PEGINTRON [Suspect]
     Indication: HEPATITIS C
     Dates: start: 20120224
  2. RIBAVIRIN [Suspect]
     Dates: start: 20120224
  3. VICTRELIS [Suspect]
     Indication: HEPATITIS C
     Dates: start: 20120323
  4. METFORMIN (METFORMIN) [Concomitant]
  5. INSULIN (INSULIN) [Concomitant]
  6. LISINOPRIL (LISINOPRIL ) [Concomitant]
  7. AMBIEN (ZOLIPIDEM TARTRATE) [Concomitant]

REACTIONS (4)
  - Weight decreased [None]
  - Decreased appetite [None]
  - Cough [None]
  - Headache [None]
